FAERS Safety Report 9856553 (Version 2)
Quarter: 2014Q1

REPORT INFORMATION
  Report Type: Spontaneous
  Country: CA (occurrence: US)
  Receive Date: 20140130
  Receipt Date: 20140130
  Transmission Date: 20141002
  Serious: No
  Sender: FDA-Public Use
  Company Number: CA-GILEAD-2012-0061392

PATIENT
  Age: 29 Year
  Sex: Female
  Weight: 68.4 kg

DRUGS (1)
  1. COMPLERA [Suspect]
     Indication: HIV INFECTION
     Dosage: UNK
     Route: 048
     Dates: start: 20120822, end: 20120828

REACTIONS (1)
  - Rash [Recovered/Resolved]
